FAERS Safety Report 7539033-5 (Version None)
Quarter: 2011Q2

REPORT INFORMATION
  Report Type: 
  Country: None (occurrence: None)
  Receive Date: 20110610
  Receipt Date: 20110531
  Transmission Date: 20111010
  Serious: Yes (Other)
  Sender: FDA-Public Use
  Company Number: PHEH2009US07559

PATIENT
  Sex: Male

DRUGS (13)
  1. NEXIUM [Concomitant]
  2. NEXAVAR [Concomitant]
  3. LORTAB [Concomitant]
  4. AMOXICILLIN [Concomitant]
  5. SUTENT [Concomitant]
  6. FLUOROURACIL [Concomitant]
  7. GEMZAR [Concomitant]
  8. TORISEL [Concomitant]
  9. ZOMETA [Suspect]
  10. OXYTOCIN [Concomitant]
  11. COUMADIN [Concomitant]
  12. PERIFUSIN [Concomitant]
  13. EFFEXOR XR [Concomitant]

REACTIONS (37)
  - SPINAL COLUMN STENOSIS [None]
  - ADENOCARCINOMA [None]
  - PATHOLOGICAL FRACTURE [None]
  - ANXIETY [None]
  - DECREASED INTEREST [None]
  - VERTEBRAL FORAMINAL STENOSIS [None]
  - ANAEMIA [None]
  - ATELECTASIS [None]
  - PLEURAL EFFUSION [None]
  - MUSCULOSKELETAL CHEST PAIN [None]
  - NEOPLASM PROGRESSION [None]
  - GINGIVAL DISORDER [None]
  - PAIN [None]
  - ANHEDONIA [None]
  - OSTEOLYSIS [None]
  - SPINAL CORD COMPRESSION [None]
  - LIMB DISCOMFORT [None]
  - LOBAR PNEUMONIA [None]
  - GENERAL PHYSICAL HEALTH DETERIORATION [None]
  - MYALGIA [None]
  - INTERVERTEBRAL DISC DEGENERATION [None]
  - HYPOTHYROIDISM [None]
  - TONGUE ULCERATION [None]
  - MOUTH ULCERATION [None]
  - RENAL DISORDER [None]
  - METASTATIC SQUAMOUS CELL CARCINOMA [None]
  - NEOPLASM MALIGNANT [None]
  - PAIN IN EXTREMITY [None]
  - DEPRESSION [None]
  - METASTASES TO SPINE [None]
  - OSTEONECROSIS OF JAW [None]
  - METASTASES TO KIDNEY [None]
  - CHEST DISCOMFORT [None]
  - PANCYTOPENIA [None]
  - PYREXIA [None]
  - PALMAR-PLANTAR ERYTHRODYSAESTHESIA SYNDROME [None]
  - PIRIFORMIS SYNDROME [None]
